FAERS Safety Report 7803946-7 (Version None)
Quarter: 2011Q4

REPORT INFORMATION
  Report Type: 
  Country: None (occurrence: None)
  Receive Date: 20111010
  Receipt Date: 20111004
  Transmission Date: 20120403
  Serious: Yes (Other)
  Sender: FDA-Public Use
  Company Number: US-PFIZER INC-2011236910

PATIENT
  Sex: Female
  Weight: 83 kg

DRUGS (4)
  1. PRILOSEC [Concomitant]
     Indication: GASTROOESOPHAGEAL REFLUX DISEASE
     Dosage: UNK
  2. SYNTHROID [Concomitant]
     Indication: HYPOTHYROIDISM
     Dosage: UNK
  3. PREMARIN [Suspect]
     Indication: SMEAR CERVIX ABNORMAL
  4. PREMARIN [Suspect]
     Indication: OFF LABEL USE
     Dosage: UNK
     Route: 067
     Dates: start: 20110824

REACTIONS (7)
  - FEELING ABNORMAL [None]
  - VISION BLURRED [None]
  - BREAST PAIN [None]
  - BREAST TENDERNESS [None]
  - PALPITATIONS [None]
  - MUSCLE SPASMS [None]
  - DIZZINESS [None]
